FAERS Safety Report 11621664 (Version 2)
Quarter: 2015Q4

REPORT INFORMATION
  Report Type: Report from Study
  Country: JP (occurrence: JP)
  Receive Date: 20151013
  Receipt Date: 20151222
  Transmission Date: 20160304
  Serious: Yes (Other)
  Sender: FDA-Public Use
  Company Number: JP-ROCHE-1642521

PATIENT

DRUGS (3)
  1. GEFITINIB [Suspect]
     Active Substance: GEFITINIB
     Indication: NON-SMALL CELL LUNG CANCER
     Route: 048
  2. BEVACIZUMAB [Suspect]
     Active Substance: BEVACIZUMAB
     Indication: NON-SMALL CELL LUNG CANCER
     Route: 042
  3. ERLOTINIB [Suspect]
     Active Substance: ERLOTINIB
     Indication: NON-SMALL CELL LUNG CANCER
     Route: 048

REACTIONS (11)
  - Decreased appetite [Unknown]
  - Paronychia [Unknown]
  - Thrombocytopenia [Unknown]
  - Proteinuria [Unknown]
  - Diarrhoea [Unknown]
  - Anaemia [Unknown]
  - Hypertension [Unknown]
  - Haemoptysis [Unknown]
  - Rash [Unknown]
  - Nausea [Unknown]
  - Drug resistance [Unknown]
